FAERS Safety Report 20745034 (Version 5)
Quarter: 2022Q3

REPORT INFORMATION
  Report Type: Report from Study
  Country: JP (occurrence: JP)
  Receive Date: 20220425
  Receipt Date: 20220824
  Transmission Date: 20221027
  Serious: Yes (Hospitalization)
  Sender: FDA-Public Use
  Company Number: JP-CATALYST PHARMACEUTICALS, INC-2022CAT00264

PATIENT
  Age: 57 Year
  Sex: Male
  Weight: 65.1 kg

DRUGS (67)
  1. AMIFAMPRIDINE [Suspect]
     Active Substance: AMIFAMPRIDINE
     Indication: Myasthenic syndrome
     Dosage: 15 MG, 1X/DAY
     Route: 048
     Dates: start: 20220318, end: 20220320
  2. AMIFAMPRIDINE [Suspect]
     Active Substance: AMIFAMPRIDINE
     Dosage: 20 MG, 1X/DAY
     Route: 048
     Dates: start: 20220321, end: 20220323
  3. AMIFAMPRIDINE [Suspect]
     Active Substance: AMIFAMPRIDINE
     Dosage: 30 MG, 1X/DAY
     Route: 048
     Dates: start: 20220324, end: 20220326
  4. AMIFAMPRIDINE [Suspect]
     Active Substance: AMIFAMPRIDINE
     Dosage: 60 MG, 1X/DAY
     Route: 048
     Dates: start: 20220327, end: 20220329
  5. AMIFAMPRIDINE [Suspect]
     Active Substance: AMIFAMPRIDINE
     Dosage: 70 MG, 1X/DAY
     Route: 048
     Dates: start: 20220330, end: 20220402
  6. PLACEBO [Suspect]
     Active Substance: UNSPECIFIED INGREDIENT
     Indication: Myasthenic syndrome
     Dosage: 15 MG, 1X/DAY
     Route: 048
     Dates: start: 20220314, end: 20220317
  7. CISPLATIN [Concomitant]
     Active Substance: CISPLATIN
     Indication: Small cell lung cancer limited stage
     Dosage: 150 MG, 1X/DAY
     Dates: start: 20210818, end: 20211027
  8. ETOPOSIDE [Concomitant]
     Active Substance: ETOPOSIDE
     Indication: Small cell lung cancer limited stage
     Dosage: 190 MG, 1X/DAY
     Dates: start: 20210818, end: 20211029
  9. AMLODIPINE BESYLATE [Concomitant]
     Active Substance: AMLODIPINE BESYLATE
     Indication: Hypertension
     Dosage: 5 MG, 1X/DAY
     Route: 048
     Dates: start: 20210817, end: 20220317
  10. VALSARTAN [Concomitant]
     Active Substance: VALSARTAN
     Indication: Hypertension
     Dosage: 40 MG, 1X/DAY
     Route: 048
  11. VONOPRAZAN FUMARATE [Concomitant]
     Active Substance: VONOPRAZAN FUMARATE
     Indication: Gastritis
     Dosage: 10 MG, 1X/DAY
     Route: 048
     Dates: start: 20211206, end: 20220415
  12. GLYCOPYRRONIUM BROMIDE/INDACATERAL MALEATE [Concomitant]
     Indication: Chronic obstructive pulmonary disease
     Dosage: 1 DOSAGE FORM, 1X/DAY
  13. MAGNESIUM OXIDE [Concomitant]
     Active Substance: MAGNESIUM OXIDE
     Indication: Constipation
     Dosage: 1980 MG, 1X/DAY
     Route: 048
     Dates: start: 20220211, end: 20220315
  14. LECICARBON [Concomitant]
     Indication: Constipation
     Dosage: 1 DOSAGE FORM, 1X/DAY AS NEEDED
     Route: 054
  15. LOXOPROFEN SODIUM [Concomitant]
     Active Substance: LOXOPROFEN SODIUM
     Indication: Pain
     Dosage: 180 MG, 1X/DAY
     Route: 048
  16. RISPERIDONE [Concomitant]
     Active Substance: RISPERIDONE
     Indication: Restlessness
     Dosage: 2 MG, 1X/DAY AS NEEDED
     Route: 048
     Dates: start: 20220315, end: 20220318
  17. GLYCERIN [Concomitant]
     Active Substance: GLYCERIN
     Indication: Constipation
     Dosage: 60 ML, 1X/DAY AS NEEDED
     Route: 054
  18. RILMAZAFONE HYDROCHLORIDE [Concomitant]
     Active Substance: RILMAZAFONE HYDROCHLORIDE
     Indication: Insomnia
     Dosage: 1 MG, 1X/DAY AS NEEDED
     Route: 048
     Dates: start: 20220316, end: 20220407
  19. ESZOPICLONE [Concomitant]
     Active Substance: ESZOPICLONE
     Indication: Insomnia
     Dosage: 1 MG, 1X/DAY AS NEEDED
     Route: 048
     Dates: start: 20220316, end: 20220316
  20. VEEN-F INJ. [Concomitant]
     Indication: Loss of personal independence in daily activities
     Dosage: 1500 ML, 1X/DAY
     Route: 042
     Dates: start: 20220317, end: 20220321
  21. VITAMIN B COMPLEX [Concomitant]
     Active Substance: CYANOCOBALAMIN\DEXPANTHENOL\NIACINAMIDE\PYRIDOXINE HYDROCHLORIDE\RIBOFLAVIN 5^-PHOSPHATE SODIUM\THIA
     Indication: Loss of personal independence in daily activities
     Dosage: 10 ML, 1X/DAY
     Route: 042
     Dates: start: 20220317, end: 20220406
  22. YD SOLITA-T NO.3 [Concomitant]
     Indication: Loss of personal independence in daily activities
     Dosage: 1000 ML, 1X/DAY
     Route: 042
     Dates: start: 20220319, end: 20220329
  23. METOCLOPRAMIDE HYDROCHLORIDE [Concomitant]
     Active Substance: METOCLOPRAMIDE HYDROCHLORIDE
     Indication: Sedative therapy
     Dosage: 10 MG, 1X/DAY
     Route: 042
     Dates: start: 20220323, end: 20220323
  24. PIPERACILLIN SODIUM\TAZOBACTAM SODIUM [Concomitant]
     Active Substance: PIPERACILLIN SODIUM\TAZOBACTAM SODIUM
     Indication: Pneumonia aspiration
     Dosage: 200 ML, 1X/DAY
     Route: 042
     Dates: start: 20220329, end: 20220404
  25. SODIUM CHLORIDE [Concomitant]
     Active Substance: SODIUM CHLORIDE
     Indication: Pneumonia aspiration
     Dosage: 50 ML, 1X/DAY
     Route: 042
     Dates: start: 20220329, end: 20220404
  26. YD SOLITA-T NO.3G [Concomitant]
     Indication: Loss of personal independence in daily activities
     Dosage: 1000 ML, 1X/DAY
     Route: 042
     Dates: start: 20220329, end: 20220411
  27. DEXTROSE [Concomitant]
     Active Substance: DEXTROSE
     Indication: Loss of personal independence in daily activities
     Dosage: 500 ML, 1X/DAY
     Route: 042
     Dates: start: 20220330, end: 20220406
  28. AMINO ACIDS, SOURCE UNSPECIFIED [Concomitant]
     Active Substance: AMINO ACIDS, SOURCE UNSPECIFIED
     Indication: Loss of personal independence in daily activities
     Dosage: 200 ML, 1X/DAY
     Route: 042
     Dates: start: 20220330, end: 20220406
  29. ROZEREM [Concomitant]
     Active Substance: RAMELTEON
     Indication: Insomnia
     Dosage: 8 MG, 1X/DAY
     Route: 048
  30. RISPERDAL [Concomitant]
     Active Substance: RISPERIDONE
     Indication: Restlessness
     Dosage: 1 MG, 1X/DAY
     Route: 042
     Dates: start: 20220328, end: 20220407
  31. METHYLPREDNISOLONE SODIUM SUCCINATE [Concomitant]
     Active Substance: METHYLPREDNISOLONE SODIUM SUCCINATE
     Indication: Altered state of consciousness
     Dosage: 1000 MG, 1X/DAY
     Route: 042
     Dates: start: 20220407, end: 20220409
  32. METHYLPREDNISOLONE SODIUM SUCCINATE [Concomitant]
     Active Substance: METHYLPREDNISOLONE SODIUM SUCCINATE
     Dosage: 1000 MG, 1X/DAY
     Route: 042
     Dates: start: 20220425, end: 20220427
  33. SODIUM CHLORIDE [Concomitant]
     Active Substance: SODIUM CHLORIDE
     Indication: Altered state of consciousness
     Dosage: 100 ML, 1X/DAY
     Route: 042
     Dates: start: 20220407, end: 20220409
  34. SODIUM CHLORIDE [Concomitant]
     Active Substance: SODIUM CHLORIDE
     Dosage: 100 ML, 1X/DAY
     Route: 042
     Dates: start: 20220425, end: 20220427
  35. INSULIN LISPRO [Concomitant]
     Active Substance: INSULIN LISPRO
     Indication: Altered state of consciousness
     Dosage: UNK
     Route: 058
  36. VENOGLOBIN IH 10% [Concomitant]
     Indication: Altered state of consciousness
     Dosage: 20 G, 1X/DAY
     Route: 042
     Dates: start: 20220415, end: 20220419
  37. VENOGLOBIN IH 10% [Concomitant]
     Indication: Altered state of consciousness
     Dosage: 5 G, 1X/DAY
     Route: 042
     Dates: start: 20220415, end: 20220419
  38. TURUMO [Concomitant]
     Indication: Altered state of consciousness
     Dosage: 1 L, 1X/DAY
     Route: 042
     Dates: start: 20220419, end: 20220420
  39. SODIUM CHLORIDE [Concomitant]
     Active Substance: SODIUM CHLORIDE
     Indication: Altered state of consciousness
     Dosage: 500 ML, 1X/DAY
     Route: 042
     Dates: start: 20220420, end: 20220420
  40. LEVOMEPROMAZINE MALEATE [Concomitant]
     Active Substance: LEVOMEPROMAZINE MALEATE
     Indication: Insomnia
     Dosage: 15 MG, 1X/DAY
     Route: 048
  41. TRAZODONE HYDROCHLORIDE [Concomitant]
     Active Substance: TRAZODONE HYDROCHLORIDE
     Indication: Restlessness
     Dosage: 25 MG, 1X/DAY
     Route: 048
  42. RISPERIDONE [Concomitant]
     Active Substance: RISPERIDONE
     Indication: Restlessness
     Dosage: 1 MG, 1X/DAY
     Route: 048
     Dates: start: 20220328, end: 20220407
  43. AMLODIPINE BESYLATE [Concomitant]
     Active Substance: AMLODIPINE BESYLATE
     Indication: Hypertension
     Dosage: 5 MG, 1X/DAY
     Route: 048
  44. PREDNISOLONE [Concomitant]
     Active Substance: PREDNISOLONE
     Indication: Altered state of consciousness
     Dosage: 60 MG, 1X/DAY
     Route: 048
     Dates: start: 20220410, end: 20220414
  45. PREDNISOLONE [Concomitant]
     Active Substance: PREDNISOLONE
     Indication: Altered state of consciousness
     Dosage: 50 MG, 1X/DAY
     Route: 048
     Dates: start: 20220415, end: 20220419
  46. PREDNISOLONE [Concomitant]
     Active Substance: PREDNISOLONE
     Indication: Altered state of consciousness
     Dosage: 40 MG, 1X/DAY
     Route: 048
     Dates: start: 20220420, end: 20220424
  47. PREDNISOLONE [Concomitant]
     Active Substance: PREDNISOLONE
     Indication: Altered state of consciousness
     Dosage: 30 MG, 1X/DAY
     Route: 048
     Dates: start: 20220428, end: 20220430
  48. PREDNISOLONE [Concomitant]
     Active Substance: PREDNISOLONE
     Indication: Altered state of consciousness
     Dosage: 15 MG, 1X/DAY
     Route: 048
     Dates: start: 20220501, end: 20220503
  49. PREDNISOLONE [Concomitant]
     Active Substance: PREDNISOLONE
     Indication: Altered state of consciousness
     Dosage: 10 MG, 1X/DAY
     Route: 048
  50. GLUCERNA [Concomitant]
     Active Substance: AMINO ACIDS\DEXTROSE\ELECTROLYTES NOS\SOYBEAN OIL\VITAMINS
     Indication: Loss of personal independence in daily activities
     Dosage: 1200 ML, 1X/DAY
     Route: 048
     Dates: start: 20220414
  51. ALFAROL [Concomitant]
     Active Substance: ALFACALCIDOL
     Indication: Osteoporosis prophylaxis
     Dosage: 1 ML, 1X/DAY
     Route: 048
     Dates: start: 20220407, end: 20220414
  52. ALFAROL [Concomitant]
     Active Substance: ALFACALCIDOL
     Indication: Osteoporosis prophylaxis
     Dosage: 0.5 ML, 1X/DAY
     Route: 048
  53. AMINO ACIDS\DEXTROSE\ELECTROLYTES NOS\VITAMINS [Concomitant]
     Active Substance: AMINO ACIDS\DEXTROSE\ELECTROLYTES NOS\VITAMINS
     Indication: Altered state of consciousness
     Dosage: 1000 ML, 1X/DAY
     Route: 048
     Dates: start: 20220510, end: 20220525
  54. SODIUM CHLORIDE [Concomitant]
     Active Substance: SODIUM CHLORIDE
     Indication: Altered state of consciousness
     Dosage: 500 ML, 1X/DAY
     Route: 048
     Dates: start: 20220510, end: 20220530
  55. HALOPERIDOL [Concomitant]
     Active Substance: HALOPERIDOL
     Indication: Restlessness
     Dosage: 5 MG, 1X/DAY
     Route: 048
  56. PREDNISOLONE SODIUM SUCCINATE [Concomitant]
     Active Substance: PREDNISOLONE SODIUM SUCCINATE
     Indication: Altered state of consciousness
     Dosage: 10 MG, 1X/DAY
     Route: 048
     Dates: start: 20220511, end: 20220525
  57. FLUNITRAZEPAM [Concomitant]
     Active Substance: FLUNITRAZEPAM
     Indication: Restlessness
     Dosage: 2 MG, 1X/DAY
     Route: 048
  58. MAGNESIUM OXIDE [Concomitant]
     Active Substance: MAGNESIUM OXIDE
     Indication: Constipation
     Dosage: 1980 MG, 1X/DAY
     Route: 048
     Dates: start: 20220316, end: 20220405
  59. LOXOPROFEN SODIUM DIHYDRATE [Concomitant]
     Active Substance: LOXOPROFEN SODIUM DIHYDRATE
     Indication: Pain
     Dosage: 180 MG, 1X/DAY
     Route: 048
     Dates: start: 20220318, end: 20220405
  60. AMINO ACIDS\DEXTROSE\ELECTROLYTES NOS\VITAMINS [Concomitant]
     Active Substance: AMINO ACIDS\DEXTROSE\ELECTROLYTES NOS\VITAMINS
     Indication: Loss of personal independence in daily activities
     Dosage: 500 ML, 1X/DAY
     Route: 042
     Dates: start: 20220526, end: 20220526
  61. AMIFAMPRIDINE [Concomitant]
     Active Substance: AMIFAMPRIDINE
     Indication: Myasthenic syndrome
     Dosage: 15 MG, 1X/DAY
     Dates: start: 20220217, end: 20220221
  62. AMIFAMPRIDINE [Concomitant]
     Active Substance: AMIFAMPRIDINE
     Dosage: 22.5 MG, 1X/DAY
     Dates: start: 20220221, end: 20220222
  63. AMIFAMPRIDINE [Concomitant]
     Active Substance: AMIFAMPRIDINE
     Dosage: 33 MG, 1X/DAY
     Dates: start: 20220223, end: 20220224
  64. AMIFAMPRIDINE [Concomitant]
     Active Substance: AMIFAMPRIDINE
     Dosage: 45 MG, 1X/DAY
     Dates: start: 20220225, end: 20220228
  65. AMIFAMPRIDINE [Concomitant]
     Active Substance: AMIFAMPRIDINE
     Dosage: 60 MG, 1X/DAY
     Dates: start: 20220228, end: 20220302
  66. AMIFAMPRIDINE [Concomitant]
     Active Substance: AMIFAMPRIDINE
     Dosage: 75 MG, 1X/DAY
     Dates: start: 20220302, end: 20220314
  67. AMIFAMPRIDINE [Concomitant]
     Active Substance: AMIFAMPRIDINE
     Dosage: 75 MG, 1X/DAY
     Dates: start: 20220405

REACTIONS (15)
  - Altered state of consciousness [Not Recovered/Not Resolved]
  - Pain [Not Recovered/Not Resolved]
  - Restlessness [Not Recovered/Not Resolved]
  - Hypotension [Recovered/Resolved]
  - Loss of personal independence in daily activities [Not Recovered/Not Resolved]
  - Dysphagia [Not Recovered/Not Resolved]
  - Pneumonia aspiration [Recovered/Resolved]
  - Antimicrobial susceptibility test resistant [Not Recovered/Not Resolved]
  - Fall [Recovered/Resolved]
  - Insomnia [Not Recovered/Not Resolved]
  - Muscular weakness [Not Recovered/Not Resolved]
  - Pyrexia [Recovered/Resolved]
  - Fall [Recovered/Resolved]
  - Fall [Recovered/Resolved]
  - Pyrexia [Recovered/Resolved]

NARRATIVE: CASE EVENT DATE: 20220314
